FAERS Safety Report 5725192-3 (Version None)
Quarter: 2008Q2

REPORT INFORMATION
  Report Type: 
  Country: None (occurrence: None)
  Receive Date: 20080501
  Receipt Date: 20080429
  Transmission Date: 20081010
  Serious: Yes (Hospitalization)
  Sender: FDA-Public Use
  Company Number: A0725345A

PATIENT
  Age: 51 Year
  Sex: Female

DRUGS (27)
  1. ZOFRAN [Suspect]
     Indication: NAUSEA
     Dosage: 4MG AS REQUIRED
     Route: 048
     Dates: start: 20070401
  2. VICODIN [Concomitant]
  3. MORPHINE [Concomitant]
  4. TOPAMAX [Concomitant]
  5. PLAVIX [Concomitant]
  6. ZOLOFT [Concomitant]
  7. LOVASTATIN [Concomitant]
  8. LISINOPRIL [Concomitant]
  9. DEXAMFETAMINE [Concomitant]
  10. PRO-AIR [Concomitant]
  11. NEXIUM [Concomitant]
  12. HUMIRA [Concomitant]
  13. PREDNISONE [Concomitant]
  14. TRAZODONE HCL [Concomitant]
  15. POTASSIUM CHLORIDE [Concomitant]
  16. TORSEMIDE [Concomitant]
  17. EVOXAC [Concomitant]
  18. DICYCLOMINE [Concomitant]
  19. GABAPENTIN [Concomitant]
  20. RESTASIS [Concomitant]
  21. FLUTICASONE PROPIONATE [Concomitant]
  22. HYDROCHLOROTHIAZIDE [Concomitant]
  23. ADVAIR HFA [Concomitant]
  24. ALBUTEROL [Concomitant]
  25. VITAMIN B-12 [Concomitant]
  26. MULTI-VITAMIN [Concomitant]
  27. ASPIRIN [Concomitant]

REACTIONS (3)
  - DEHYDRATION [None]
  - DIARRHOEA [None]
  - DRUG INEFFECTIVE [None]
